FAERS Safety Report 14574294 (Version 1)
Quarter: 2018Q1

REPORT INFORMATION
  Report Type: Report from Study
  Country: None (occurrence: DE)
  Receive Date: 20180226
  Receipt Date: 20180226
  Transmission Date: 20180509
  Serious: Yes (Other)
  Sender: FDA-Public Use
  Company Number: DE-ABBVIE-18S-062-2266928-00

PATIENT
  Age: 42 Year
  Sex: Male
  Weight: 82 kg

DRUGS (6)
  1. TENOFOVIR [Concomitant]
     Active Substance: TENOFOVIR
     Indication: ANTIRETROVIRAL THERAPY
     Dosage: 245 MG
     Route: 065
  2. EMTRICITABINA [Concomitant]
     Active Substance: EMTRICITABINE
     Indication: HIV INFECTION
     Dosage: DOSE: 200 MG
     Route: 065
  3. RIBAVIRIN. [Suspect]
     Active Substance: RIBAVIRIN
     Dosage: 600 MG
     Route: 065
  4. ZEPATIER [Suspect]
     Active Substance: ELBASVIR\GRAZOPREVIR
     Indication: CHRONIC HEPATITIS C
     Dosage: DAILY DOSE: 1 DF DOSAGE FORM EVERY DAY
     Route: 048
  5. RIBAVIRIN. [Suspect]
     Active Substance: RIBAVIRIN
     Indication: HEPATITIS C
     Dosage: 1200 MG, QD
     Route: 065
  6. RILPIVIRINA [Concomitant]
     Active Substance: RILPIVIRINE
     Indication: ANTIRETROVIRAL THERAPY
     Dosage: 25 MG
     Route: 065

REACTIONS (4)
  - Product use issue [Unknown]
  - Anaemia [Not Recovered/Not Resolved]
  - Skin disorder [Unknown]
  - Fatigue [Not Recovered/Not Resolved]

NARRATIVE: CASE EVENT DATE: 20170623
